FAERS Safety Report 5187923-3 (Version None)
Quarter: 2006Q4

REPORT INFORMATION
  Report Type: 
  Country: None (occurrence: None)
  Receive Date: 20061221
  Receipt Date: 20061020
  Transmission Date: 20070319
  Serious: Yes (Death, Hospitalization)
  Sender: FDA-Public Use
  Company Number: HQWYE388220OCT06

PATIENT
  Sex: Female
  Weight: 70 kg

DRUGS (8)
  1. ENBREL [Suspect]
     Indication: RHEUMATOID ARTHRITIS
     Route: 058
     Dates: start: 20050418, end: 20061001
  2. METHOTREXATE [Concomitant]
     Indication: RHEUMATOID ARTHRITIS
     Dosage: UNKNOWN
     Route: 048
     Dates: end: 20050617
  3. METHOTREXATE [Concomitant]
     Dosage: UNKNOWN
     Route: 048
     Dates: start: 20050623
  4. TAKEPRON [Concomitant]
     Route: 048
  5. SOLON [Concomitant]
     Route: 048
  6. ORUDIS [Concomitant]
     Dosage: 50 MG
     Route: 054
  7. PREDONINE [Concomitant]
     Indication: RHEUMATOID ARTHRITIS
     Dosage: UNKNOWN
     Route: 048
  8. VOLTAREN [Concomitant]
     Route: 048

REACTIONS (6)
  - DIFFUSE ALVEOLAR DAMAGE [None]
  - DRUG INEFFECTIVE [None]
  - PSEUDOMONAS INFECTION [None]
  - SEPSIS [None]
  - SHOCK [None]
  - STENOTROPHOMONAS INFECTION [None]
